FAERS Safety Report 17512008 (Version 1)
Quarter: 2020Q1

REPORT INFORMATION
  Report Type: Spontaneous
  Country: FR (occurrence: FR)
  Receive Date: 20200307
  Receipt Date: 20200307
  Transmission Date: 20200409
  Serious: Yes (Life-Threatening)
  Sender: FDA-Public Use
  Company Number: FR-ZYDUS-048285

PATIENT
  Age: 0 Day
  Sex: Male
  Weight: 2.69 kg

DRUGS (7)
  1. ANETHOLE TRITHIONE/CHOLINE BITARTRATE [Suspect]
     Active Substance: ANETHOLTRITHION\CHOLINE BITARTRATE
     Indication: APTYALISM
     Route: 064
     Dates: end: 20200204
  2. DOXYLAMINE [Suspect]
     Active Substance: DOXYLAMINE
     Indication: INSOMNIA
     Route: 064
     Dates: end: 20200123
  3. METHADONE [Suspect]
     Active Substance: METHADONE HYDROCHLORIDE
     Indication: DRUG DEPENDENCE
     Route: 064
     Dates: end: 20200204
  4. VENLAFAXINE/VENLAFAXINE HYDROCHLORIDE [Suspect]
     Active Substance: VENLAFAXINE HYDROCHLORIDE
     Indication: DEPRESSION
     Route: 064
     Dates: end: 20200204
  5. BROMAZEPAM [Suspect]
     Active Substance: BROMAZEPAM
     Indication: ANXIETY
     Route: 064
     Dates: end: 20200204
  6. ZOPICLONE [Suspect]
     Active Substance: ZOPICLONE
     Indication: INSOMNIA
     Route: 064
     Dates: end: 20200128
  7. MIRTAZAPINE. [Suspect]
     Active Substance: MIRTAZAPINE
     Indication: DEPRESSION
     Route: 064
     Dates: end: 20200130

REACTIONS (3)
  - Premature baby [Recovered/Resolved with Sequelae]
  - Respiratory distress [Recovered/Resolved]
  - Withdrawal syndrome [Recovered/Resolved]

NARRATIVE: CASE EVENT DATE: 20200207
